FAERS Safety Report 8217940-8 (Version None)
Quarter: 2012Q1

REPORT INFORMATION
  Report Type: 
  Country: None (occurrence: None)
  Receive Date: 20120319
  Receipt Date: 20120312
  Transmission Date: 20120608
  Serious: Yes (Death)
  Sender: FDA-Public Use
  Company Number: US-BAYER-201029234NA

PATIENT
  Age: 53 Year
  Sex: Female
  Weight: 114.74 kg

DRUGS (37)
  1. PROHANCE [Suspect]
     Indication: NUCLEAR MAGNETIC RESONANCE IMAGING
  2. XOPENEX [Concomitant]
  3. VASOTEC [Concomitant]
  4. DEMEDEX [Concomitant]
  5. ENALAPRIL [Concomitant]
  6. SENSIPAR [Concomitant]
  7. ASTELIN [Concomitant]
  8. PHOSLO [Concomitant]
  9. VASOPRESSIN [Concomitant]
  10. HUMULIN N [Concomitant]
  11. ZELNORM [Concomitant]
  12. MAGNEVIST [Suspect]
     Indication: NUCLEAR MAGNETIC RESONANCE IMAGING
  13. ATIVAN [Concomitant]
  14. WELLBUTRIN XL [Concomitant]
  15. ASPIRIN [Concomitant]
  16. SANTYL [Concomitant]
  17. NORCO [Concomitant]
  18. KEPPRA [Concomitant]
  19. OMNISCAN [Suspect]
     Indication: NUCLEAR MAGNETIC RESONANCE IMAGING
  20. OPTIMARK [Suspect]
     Indication: NUCLEAR MAGNETIC RESONANCE IMAGING
  21. MULTIHANCE [Suspect]
     Indication: NUCLEAR MAGNETIC RESONANCE IMAGING
  22. AVANDIA [Concomitant]
  23. ALLOPURINOL [Concomitant]
  24. EPOGEN [Concomitant]
  25. ASPIRIN [Concomitant]
  26. TORSEMIDE [Concomitant]
  27. NEURONTIN [Concomitant]
  28. HYDROCODONE BITARTRATE AND ACETAMINOPHEN [Concomitant]
  29. SYNTHROID [Concomitant]
  30. REGULAR INSULIN [Concomitant]
  31. RENAGEL [Concomitant]
  32. NPH INSULIN [Concomitant]
  33. ATROVENT [Concomitant]
  34. ZYLOPRIM [Concomitant]
  35. MIRAPEX [Concomitant]
  36. GLUCOTROL [Concomitant]
  37. IBUPROFEN [Concomitant]

REACTIONS (20)
  - NEPHROGENIC SYSTEMIC FIBROSIS [None]
  - SKIN DISCOLOURATION [None]
  - MOBILITY DECREASED [None]
  - OEDEMA PERIPHERAL [None]
  - PAIN IN EXTREMITY [None]
  - LOCALISED OEDEMA [None]
  - INJURY [None]
  - PRURITUS [None]
  - SKIN INDURATION [None]
  - EMOTIONAL DISTRESS [None]
  - ANHEDONIA [None]
  - SKIN HYPERTROPHY [None]
  - ARTHRALGIA [None]
  - ERYTHEMA [None]
  - PAIN [None]
  - JOINT RANGE OF MOTION DECREASED [None]
  - ANXIETY [None]
  - SKIN MASS [None]
  - ACTIVITIES OF DAILY LIVING IMPAIRED [None]
  - SKIN TIGHTNESS [None]
